FAERS Safety Report 23348712 (Version 2)
Quarter: 2024Q1

REPORT INFORMATION
  Report Type: Spontaneous
  Country: PT (occurrence: None)
  Receive Date: 20231229
  Receipt Date: 20240111
  Transmission Date: 20240409
  Serious: Yes (Hospitalization, Other)
  Sender: FDA-Public Use
  Company Number: None

PATIENT
  Age: 81 Year
  Sex: Male
  Weight: 55 kg

DRUGS (18)
  1. TECENTRIQ [Suspect]
     Active Substance: ATEZOLIZUMAB
     Indication: Small cell lung cancer
     Dosage: ATEZOLIZUMAB IV 1200MG, DIA 1, 21/21 DIAS
     Route: 041
     Dates: start: 20230928
  2. CARBOPLATIN [Suspect]
     Active Substance: CARBOPLATIN
     Indication: Small cell lung cancer
     Dosage: AUC5 IV, DAY 1, 21/21 DAYS
     Route: 042
     Dates: start: 20230928
  3. ETOPOSIDE [Suspect]
     Active Substance: ETOPOSIDE
     Indication: Small cell lung cancer
     Dosage: ORAL ETOPOSIDE 200MG, DAYS 2 AND 3
     Route: 048
     Dates: start: 20230929
  4. ETOPOSIDE [Suspect]
     Active Substance: ETOPOSIDE
     Dosage: ETOPOSIDE 100MG IV, DAY 1, 21/21 DAYS; ORAL ETOPOSIDE 200MG, DAYS 2 AND 3
     Route: 042
     Dates: start: 20230928
  5. BISACODILO [Concomitant]
     Dosage: AT DINNER (STOPS DIARRHEA)
  6. PENTOXIFYLLINE [Concomitant]
     Active Substance: PENTOXIFYLLINE
  7. DUTASTERIDE\TAMSULOSIN [Concomitant]
     Active Substance: DUTASTERIDE\TAMSULOSIN
  8. ZOLPIDEM [Concomitant]
     Active Substance: ZOLPIDEM TARTRATE
     Dosage: AO DEITAR
  9. SODIUM CHLORIDE [Concomitant]
     Active Substance: SODIUM CHLORIDE
  10. MAGNESIUM ASPARTATE [Concomitant]
     Active Substance: MAGNESIUM ASPARTATE
     Dosage: 1 SAQUETA 2X/DIA
  11. ATORVASTATIN [Concomitant]
     Active Substance: ATORVASTATIN
     Dosage: AO JANTAR
  12. FUROSEMIDE [Concomitant]
     Active Substance: FUROSEMIDE
     Dosage: FOR BREAKFAST
  13. AMLODIPINE BESYLATE\LISINOPRIL [Concomitant]
     Active Substance: AMLODIPINE BESYLATE\LISINOPRIL
     Dosage: FOR BREAKFAST
  14. HERBALS\SAW PALMETTO [Concomitant]
     Active Substance: HERBALS\SAW PALMETTO
  15. ASPIRIN DL-LYSINE [Concomitant]
     Active Substance: ASPIRIN DL-LYSINE
     Dosage: AT LUNCH
  16. OMEPRAZOLE [Concomitant]
     Active Substance: OMEPRAZOLE
     Dosage: EM JEJUM
  17. METFORMIN\SITAGLIPTIN [Concomitant]
     Active Substance: METFORMIN\SITAGLIPTIN
  18. PENICILINA [Concomitant]

REACTIONS (4)
  - Asthenia [Recovering/Resolving]
  - Intermittent claudication [Recovering/Resolving]
  - Iridocyclitis [Recovering/Resolving]
  - Febrile neutropenia [Unknown]

NARRATIVE: CASE EVENT DATE: 20231105
